FAERS Safety Report 4955812-2 (Version None)
Quarter: 2006Q1

REPORT INFORMATION
  Report Type: 
  Country: None (occurrence: None)
  Receive Date: 20060327
  Receipt Date: 20060327
  Transmission Date: 20060701
  Serious: Yes (Other)
  Sender: FDA-Public Use
  Company Number: None

PATIENT
  Age: 9 Year
  Sex: Female
  Weight: 28.5766 kg

DRUGS (2)
  1. BACTRIM DS [Suspect]
     Indication: INFECTION
     Dosage: 1 TABLET   TWICE A DAY   PO
     Route: 048
     Dates: start: 20060124, end: 20060129
  2. BACTRIM DS [Suspect]
     Indication: LYMPHADENOPATHY
     Dosage: 1 TABLET   TWICE A DAY   PO
     Route: 048
     Dates: start: 20060124, end: 20060129

REACTIONS (2)
  - DRUG HYPERSENSITIVITY [None]
  - STEVENS-JOHNSON SYNDROME [None]
